FAERS Safety Report 9196805 (Version 2)
Quarter: 2013Q2

REPORT INFORMATION
  Report Type: Spontaneous
  Country: NL (occurrence: NL)
  Receive Date: 20130328
  Receipt Date: 20130410
  Transmission Date: 20140414
  Serious: Yes (Death)
  Sender: FDA-Public Use
  Company Number: NL-009507513-1303NLD009655

PATIENT
  Age: 43 Year
  Sex: Female

DRUGS (3)
  1. MARVELON [Suspect]
     Dosage: 1 TIMES PER 1 DAYS 1 DF
     Route: 048
     Dates: start: 20120425
  2. CARBASPIRIN CALCIUM [Concomitant]
     Dosage: 1 TIMES PER 1 DAYS 300 MG
     Dates: start: 20120524
  3. OMEPRAZOLE MAGNESIUM [Concomitant]
     Dosage: 1 TIMES PER 1 DAYS 20 MG
     Dates: start: 20120524

REACTIONS (1)
  - Pulmonary embolism [Fatal]
